FAERS Safety Report 23467186 (Version 1)
Quarter: 2024Q1

REPORT INFORMATION
  Report Type: Spontaneous
  Country: US (occurrence: US)
  Receive Date: 20240201
  Receipt Date: 20240201
  Transmission Date: 20240409
  Serious: No
  Sender: FDA-Public Use
  Company Number: US-002147023-NVSC2024US019282

PATIENT
  Sex: Female

DRUGS (1)
  1. COSENTYX [Suspect]
     Active Substance: SECUKINUMAB
     Indication: Product used for unknown indication
     Dosage: 150 MG, Q2W
     Route: 065

REACTIONS (4)
  - Product quality issue [Unknown]
  - Needle issue [Unknown]
  - Accidental exposure to product [Unknown]
  - Therapeutic product effect incomplete [Unknown]
